FAERS Safety Report 8564165-2 (Version None)
Quarter: 2012Q3

REPORT INFORMATION
  Report Type: 
  Country: None (occurrence: None)
  Receive Date: 20120803
  Receipt Date: 20120731
  Transmission Date: 20120928
  Serious: Yes (Hospitalization)
  Sender: FDA-Public Use
  Company Number: US-009507513-1208USA000514

PATIENT

DRUGS (7)
  1. PROCRIT [Concomitant]
  2. LEVOTHYROXINE SODIUM [Concomitant]
  3. REBETOL [Suspect]
  4. VICTRELIS [Suspect]
     Indication: HEPATITIS C
     Dosage: UNK
     Dates: start: 20110820, end: 20120707
  5. METOPROLOL TARTRATE [Concomitant]
  6. WARFARIN SODIUM [Concomitant]
  7. PEGASYS [Suspect]

REACTIONS (2)
  - ANAEMIA [None]
  - ATRIAL FIBRILLATION [None]
